FAERS Safety Report 6680021-9 (Version None)
Quarter: 2010Q2

REPORT INFORMATION
  Report Type: 
  Country: None (occurrence: None)
  Receive Date: 20100413
  Receipt Date: 20100401
  Transmission Date: 20101027
  Serious: Yes (Hospitalization, Other)
  Sender: FDA-Public Use
  Company Number: AU-PFIZER INC-2010033974

PATIENT
  Age: 44 Year
  Sex: Male

DRUGS (6)
  1. ZELDOX [Suspect]
     Indication: SCHIZOPHRENIA
     Dosage: 60 MG, 2X/DAY
     Route: 048
     Dates: start: 20090818, end: 20100330
  2. DIPENTUM [Concomitant]
     Indication: COLITIS
  3. COVERSYL [Concomitant]
     Indication: HYPERTENSION
  4. ATACAND HCT [Concomitant]
     Indication: HYPERTENSION
  5. DIAZEPAM [Concomitant]
     Indication: ANXIETY
     Dosage: 5 MG, UNK
  6. CRESTOR [Concomitant]
     Indication: HYPERLIPIDAEMIA

REACTIONS (7)
  - ANXIETY [None]
  - DEHYDRATION [None]
  - FEELING ABNORMAL [None]
  - HYPOTENSION [None]
  - LOSS OF CONSCIOUSNESS [None]
  - PETECHIAE [None]
  - THIRST [None]
